FAERS Safety Report 5212017-8 (Version None)
Quarter: 2007Q1

REPORT INFORMATION
  Report Type: 
  Country: None (occurrence: None)
  Receive Date: 20070118
  Receipt Date: 20070110
  Transmission Date: 20070707
  Serious: Yes (Hospitalization, Other)
  Sender: FDA-Public Use
  Company Number: US-SHR-US-2006-029715

PATIENT
  Age: 49 Year
  Sex: Female
  Weight: 61 kg

DRUGS (5)
  1. MAGNEVIST [Suspect]
     Indication: ANGIOGRAM
     Dosage: 20 ML, 1 DOSE
     Route: 042
     Dates: start: 20061004, end: 20061004
  2. SALINE [Concomitant]
     Dosage: 20 ML FLUSH, POST INJ.
     Route: 042
     Dates: start: 20061004, end: 20061004
  3. LIPITOR [Concomitant]
  4. METOPROLOL SUCCINATE [Concomitant]
     Indication: HYPERTENSION
  5. SYNTHROID [Concomitant]

REACTIONS (4)
  - ACUTE PULMONARY OEDEMA [None]
  - HEART RATE INCREASED [None]
  - HYPERTENSION [None]
  - RESTLESSNESS [None]
